FAERS Safety Report 8166631-0 (Version None)
Quarter: 2012Q1

REPORT INFORMATION
  Report Type: 
  Country: None (occurrence: None)
  Receive Date: 20120227
  Receipt Date: 20120216
  Transmission Date: 20120608
  Serious: Yes (Other)
  Sender: FDA-Public Use
  Company Number: GR-BRISTOL-MYERS SQUIBB COMPANY-16401895

PATIENT
  Age: 26 Year
  Sex: Female

DRUGS (3)
  1. VORICONAZOLE [Concomitant]
  2. BARACLUDE [Suspect]
     Indication: HEPATITIS B
     Route: 048
     Dates: start: 20120201, end: 20120201
  3. CYCLOSPORINE [Concomitant]

REACTIONS (1)
  - TREMOR [None]
